FAERS Safety Report 7904796-3 (Version None)
Quarter: 2011Q4

REPORT INFORMATION
  Report Type: 
  Country: None (occurrence: None)
  Receive Date: 20111109
  Receipt Date: 20111026
  Transmission Date: 20120403
  Serious: Yes (Other)
  Sender: FDA-Public Use
  Company Number: PHHY2011JP95238

PATIENT
  Age: 14 Year
  Sex: Male

DRUGS (2)
  1. CYCLOSPORINE [Suspect]
     Indication: RENAL TRANSPLANT
     Route: 048
  2. MIZORIBINE [Concomitant]
     Route: 048

REACTIONS (1)
  - TYPE 2 DIABETES MELLITUS [None]
